FAERS Safety Report 9515631 (Version 1)
Quarter: 2013Q1

REPORT INFORMATION
  Report Type: Spontaneous
  Country: US (occurrence: None)
  Receive Date: 20130305
  Receipt Date: 20130305
  Transmission Date: 20140127
  Serious: Yes (Hospitalization)
  Sender: FDA-Public Use
  Company Number: 163-21880-12122881

PATIENT
  Age: 77 Year
  Sex: Female
  Weight: 44.45 kg

DRUGS (5)
  1. REVLIMID (LENALIDOMIDE) (25 MILLIGRAM, CAPSULES) [Suspect]
     Indication: HODGKIN^S DISEASE
     Dosage: 1 IN 1 D
     Route: 048
     Dates: start: 201208
  2. BABY ASPIRIN (ACETYLSALIYLIC ACID) (TABLETS) [Concomitant]
  3. CARVEDILOL (CARVEDILOL) (UNKNOWN) [Concomitant]
  4. FUROSEMIDE (FUROSEMIDE) (TABLETS) [Concomitant]
  5. VITAMIN B-12 (CYANOCOBALAMIN) (UNKNOWN) [Concomitant]

REACTIONS (3)
  - Loss of consciousness [None]
  - Hypotension [None]
  - Full blood count decreased [None]
